FAERS Safety Report 17926848 (Version 1)
Quarter: 2020Q2

REPORT INFORMATION
  Report Type: Report from Study
  Country: None (occurrence: CO)
  Receive Date: 20200623
  Receipt Date: 20200623
  Transmission Date: 20200714
  Serious: Yes (Hospitalization, Other)
  Sender: FDA-Public Use
  Company Number: CO-ABBVIE-20K-036-3453452-00

PATIENT
  Age: 63 Year
  Sex: Male
  Weight: 53 kg

DRUGS (3)
  1. ZEMPLAR [Suspect]
     Active Substance: PARICALCITOL
     Indication: CHRONIC KIDNEY DISEASE
  2. CALCIUM [Concomitant]
     Active Substance: CALCIUM
     Indication: OSTEOPOROSIS
     Dosage: 1 DAILY
     Route: 048
  3. ZEMPLAR [Suspect]
     Active Substance: PARICALCITOL
     Indication: HYPERPARATHYROIDISM SECONDARY
     Dosage: POST DIALYSIS
     Route: 042
     Dates: start: 20200316, end: 20200520

REACTIONS (8)
  - Osteoporosis [Recovering/Resolving]
  - Bone fissure [Recovering/Resolving]
  - Heart rate decreased [Recovering/Resolving]
  - Memory impairment [Recovering/Resolving]
  - Joint dislocation [Recovering/Resolving]
  - Oxygen saturation abnormal [Recovering/Resolving]
  - Lung cyst [Recovering/Resolving]
  - Lung disorder [Recovering/Resolving]

NARRATIVE: CASE EVENT DATE: 202003
